FAERS Safety Report 6063243-X (Version None)
Quarter: 2009Q1

REPORT INFORMATION
  Report Type: 
  Country: None (occurrence: None)
  Receive Date: 20090203
  Receipt Date: 20090130
  Transmission Date: 20090719
  Serious: Yes (Hospitalization)
  Sender: FDA-Public Use
  Company Number: PT-BRISTOL-MYERS SQUIBB COMPANY-14488373

PATIENT
  Age: 7 Year
  Sex: Male
  Weight: 27 kg

DRUGS (3)
  1. PROCEF POWDER FOR SUSP 250 MG/5 ML [Suspect]
     Indication: RESPIRATORY TRACT INFECTION
     Route: 048
     Dates: start: 20080301, end: 20080303
  2. ACETAMINOPHEN [Suspect]
     Indication: PYREXIA
     Route: 048
     Dates: start: 20080227, end: 20080303
  3. IBUPROFEN [Suspect]
     Indication: PYREXIA
     Route: 048
     Dates: start: 20080228, end: 20080303

REACTIONS (1)
  - GASTROINTESTINAL HAEMORRHAGE [None]
